FAERS Safety Report 6011960-X (Version None)
Quarter: 2008Q4

REPORT INFORMATION
  Report Type: 
  Country: None (occurrence: None)
  Receive Date: 20081218
  Receipt Date: 20081015
  Transmission Date: 20090506
  Serious: No
  Sender: FDA-Public Use
  Company Number: US-ASTRAZENECA-2008UW22618

PATIENT
  Age: 58 Year
  Sex: Male
  Weight: 106.6 kg

DRUGS (4)
  1. CRESTOR [Suspect]
     Indication: BLOOD CHOLESTEROL
     Route: 048
     Dates: start: 20080701
  2. DIOVAN [Concomitant]
  3. METOPROLOL TARTRATE [Concomitant]
  4. ASPIRIN [Concomitant]

REACTIONS (3)
  - JOINT STIFFNESS [None]
  - PRODUCTIVE COUGH [None]
  - SPUTUM DISCOLOURED [None]
